FAERS Safety Report 7424383-3 (Version None)
Quarter: 2011Q2

REPORT INFORMATION
  Report Type: 
  Country: None (occurrence: None)
  Receive Date: 20110411
  Receipt Date: 20110328
  Transmission Date: 20111010
  Serious: Yes (Disabling, Other)
  Sender: FDA-Public Use
  Company Number: 2011P1004921

PATIENT
  Age: 66 Year
  Sex: Female
  Weight: 74.8435 kg

DRUGS (9)
  1. NEURONTIN [Concomitant]
  2. STARLIX [Concomitant]
  3. ATIVAN [Concomitant]
  4. ZOFRAN [Concomitant]
  5. GLUCOPHAGE [Concomitant]
  6. SYNTHROID [Concomitant]
  7. FENTANYL-25 [Suspect]
     Indication: CANCER PAIN
     Dosage: 1 PATCH; Q3D; TDER
     Route: 062
     Dates: start: 20110201, end: 20110313
  8. COMPAZINE [Concomitant]
  9. JANUVIA [Concomitant]

REACTIONS (5)
  - SPEECH DISORDER [None]
  - SOMNOLENCE [None]
  - ASTHENIA [None]
  - ACTIVITIES OF DAILY LIVING IMPAIRED [None]
  - GAIT DISTURBANCE [None]
